FAERS Safety Report 24764858 (Version 3)
Quarter: 2025Q2

REPORT INFORMATION
  Report Type: Report from Study
  Country: AU (occurrence: AU)
  Receive Date: 20241223
  Receipt Date: 20250523
  Transmission Date: 20250716
  Serious: Yes (Life-Threatening, Hospitalization, Disabling, Other)
  Sender: SAMSUNG BIOEPIS
  Company Number: AU-SAMSUNG BIOEPIS-SB-2024-38398

PATIENT
  Sex: Female

DRUGS (1)
  1. ETANERCEPT [Suspect]
     Active Substance: ETANERCEPT
     Indication: Rheumatoid arthritis
     Dosage: HAS BEEN ON BRENZYS FOR AROUND 6 MONTHS (CAN^T REMEMBER EXACT STARTING DATE);

REACTIONS (5)
  - Chronic obstructive pulmonary disease [Recovered/Resolved with Sequelae]
  - Dyspnoea [Recovered/Resolved]
  - Hypersensitivity [Recovered/Resolved]
  - Oral herpes [Recovered/Resolved]
  - Injection site bruising [Recovered/Resolved]
